FAERS Safety Report 25348580 (Version 1)
Quarter: 2025Q2

REPORT INFORMATION
  Report Type: Spontaneous
  Country: FR (occurrence: FR)
  Receive Date: 20250522
  Receipt Date: 20250522
  Transmission Date: 20250717
  Serious: Yes (Life-Threatening, Hospitalization, Other)
  Sender: MYLAN
  Company Number: FR-ABBOTT-06P-056-0344263-00

PATIENT
  Age: 64 Year
  Sex: Female
  Weight: 71 kg

DRUGS (16)
  1. VERAPAMIL HYDROCHLORIDE [Suspect]
     Active Substance: VERAPAMIL HYDROCHLORIDE
     Indication: Atrial tachycardia
     Dosage: 120 MILLIGRAM, QD
     Dates: start: 20060829, end: 20060830
  2. DIAMOX SEQUELS [Suspect]
     Active Substance: ACETAZOLAMIDE
     Indication: Product used for unknown indication
  3. DIAMOX SEQUELS [Suspect]
     Active Substance: ACETAZOLAMIDE
     Indication: Diuretic therapy
  4. FUROSEMIDE [Suspect]
     Active Substance: FUROSEMIDE
     Indication: Product used for unknown indication
  5. FUROSEMIDE [Suspect]
     Active Substance: FUROSEMIDE
     Indication: Diuretic therapy
  6. FUROSEMIDE [Suspect]
     Active Substance: FUROSEMIDE
  7. FLUINDIONE [Concomitant]
     Active Substance: FLUINDIONE
     Indication: Product used for unknown indication
     Dates: start: 20060825, end: 20060830
  8. FLUINDIONE [Concomitant]
     Active Substance: FLUINDIONE
  9. Spasfon [Concomitant]
     Indication: Product used for unknown indication
     Dates: start: 20060825, end: 20060830
  10. PREDNISOLONE [Concomitant]
     Active Substance: PREDNISOLONE
     Indication: Product used for unknown indication
     Dates: start: 20060825, end: 20060830
  11. SPIRONOLACTONE [Concomitant]
     Active Substance: SPIRONOLACTONE
     Indication: Product used for unknown indication
     Dates: start: 20060825, end: 20060830
  12. SPIRONOLACTONE [Concomitant]
     Active Substance: SPIRONOLACTONE
  13. 1,3,5-TRIMETHOXYBENZENE [Concomitant]
     Active Substance: 1,3,5-TRIMETHOXYBENZENE
     Indication: Product used for unknown indication
     Dates: start: 20060825, end: 20060830
  14. ASPIRIN LYSINE [Concomitant]
     Active Substance: ASPIRIN LYSINE
     Indication: Product used for unknown indication
  15. POTASSIUM CHLORIDE [Concomitant]
     Active Substance: POTASSIUM CHLORIDE
     Indication: Product used for unknown indication
  16. DOBUTAMINE [Concomitant]
     Active Substance: DOBUTAMINE HYDROCHLORIDE

REACTIONS (19)
  - Hypovolaemic shock [Not Recovered/Not Resolved]
  - Acute kidney injury [Recovered/Resolved]
  - Hepatic failure [Recovering/Resolving]
  - Abdominal pain [Unknown]
  - Cardiogenic shock [Recovered/Resolved]
  - Blood pressure immeasurable [Unknown]
  - Bradycardia [Unknown]
  - Somnolence [Unknown]
  - Depressed mood [Unknown]
  - Hepatic cytolysis [Unknown]
  - Lactic acidosis [Recovered/Resolved]
  - Haemoconcentration [Unknown]
  - Hyponatraemia [Unknown]
  - Cholestasis [Unknown]
  - Hyperkalaemia [Unknown]
  - Atrial flutter [Unknown]
  - Cardiac ventricular thrombosis [Unknown]
  - Shock [Recovering/Resolving]
  - Blood pressure decreased [Recovering/Resolving]

NARRATIVE: CASE EVENT DATE: 20060830
